FAERS Safety Report 16272044 (Version 1)
Quarter: 2019Q2

REPORT INFORMATION
  Report Type: Spontaneous
  Country: FR (occurrence: FR)
  Receive Date: 20190506
  Receipt Date: 20190506
  Transmission Date: 20190711
  Serious: Yes (Death)
  Sender: FDA-Public Use
  Company Number: FR-ZYDUS-036489

PATIENT
  Age: 57 Year
  Sex: Female
  Weight: 60 kg

DRUGS (6)
  1. ALIMEMAZINE [Suspect]
     Active Substance: TRIMEPRAZINE
     Indication: BURNOUT SYNDROME
     Route: 048
     Dates: start: 201812
  2. CYAMEMAZINE [Suspect]
     Active Substance: CYAMEMAZINE
     Indication: BURNOUT SYNDROME
     Route: 048
     Dates: start: 201812
  3. MEPHENESIN/METHYL NICOTINATE [Suspect]
     Active Substance: MEPHENESIN\METHYL NICOTINATE
     Indication: NECK PAIN
     Dosage: 1 TO 2 BOXES UP TO 5 ACCORDING TO THE ENTOURAGE
     Route: 048
     Dates: start: 2012
  4. VENLAFAXINE/VENLAFAXINE HYDROCHLORIDE [Suspect]
     Active Substance: VENLAFAXINE HYDROCHLORIDE
     Indication: BURNOUT SYNDROME
     Route: 048
     Dates: start: 201812
  5. PRAZEPAM [Suspect]
     Active Substance: PRAZEPAM
     Indication: BURNOUT SYNDROME
     Route: 048
     Dates: start: 201812
  6. LORMETAZEPAM [Suspect]
     Active Substance: LORMETAZEPAM
     Indication: BURNOUT SYNDROME
     Route: 048
     Dates: start: 201812

REACTIONS (1)
  - Death [Fatal]

NARRATIVE: CASE EVENT DATE: 20190414
